FAERS Safety Report 6358371-5 (Version None)
Quarter: 2009Q3

REPORT INFORMATION
  Report Type: 
  Country: None (occurrence: None)
  Receive Date: 20090916
  Receipt Date: 20090904
  Transmission Date: 20100115
  Serious: Yes (Hospitalization)
  Sender: FDA-Public Use
  Company Number: US-PFIZER INC-2009268599

PATIENT
  Sex: Male
  Weight: 99.32 kg

DRUGS (16)
  1. SUNITINIB MALATE [Suspect]
     Indication: METASTATIC RENAL CELL CARCINOMA
     Dosage: 50 MG, 1X/DAY
     Route: 048
     Dates: start: 20040408, end: 20040728
  2. NORVASC [Concomitant]
     Dosage: UNK
     Route: 048
     Dates: start: 20020101
  3. GLIPIZIDE [Concomitant]
     Dosage: UNK
     Route: 048
     Dates: start: 20020101
  4. NEURONTIN [Concomitant]
     Dosage: UNK
     Route: 048
     Dates: start: 20020101
  5. MS CONTIN [Concomitant]
     Dosage: UNK
     Route: 048
     Dates: start: 20040101
  6. PANTOPRAZOLE [Concomitant]
     Dosage: UNK
     Route: 048
     Dates: start: 20040301
  7. LEXAPRO [Concomitant]
     Dosage: UNK
     Route: 048
     Dates: start: 20040326
  8. XANAX [Concomitant]
     Dosage: UNK
     Route: 048
     Dates: start: 20040101
  9. KAYEXALATE [Concomitant]
     Dosage: UNK
     Route: 048
     Dates: start: 20040401
  10. ZOFRAN [Concomitant]
     Dosage: UNK
     Route: 048
     Dates: start: 20040201
  11. SENOKOT [Concomitant]
     Dosage: UNK
     Route: 048
     Dates: start: 20030101
  12. CARAFATE [Concomitant]
     Dosage: UNK
     Route: 048
     Dates: start: 20030101
  13. DULCOLAX [Concomitant]
     Dosage: UNK
     Route: 048
     Dates: start: 20030101
  14. REGLAN [Concomitant]
     Dosage: UNK
     Route: 048
     Dates: start: 20040422
  15. PROCRIT [Concomitant]
     Dosage: UNK
     Route: 058
     Dates: start: 20040416
  16. MORPHINE SULFATE [Concomitant]
     Dosage: UNK
     Route: 048
     Dates: start: 20040101

REACTIONS (1)
  - RENAL FAILURE [None]
